FAERS Safety Report 25245557 (Version 1)
Quarter: 2025Q2

REPORT INFORMATION
  Report Type: Spontaneous
  Country: US (occurrence: US)
  Receive Date: 20250428
  Receipt Date: 20250428
  Transmission Date: 20250716
  Serious: No
  Sender: MISSION PHARMACAL COMPANY
  Company Number: US-Mission Pharmacal Company-2175730

PATIENT
  Age: 91 Year
  Sex: Male

DRUGS (12)
  1. POTASSIUM CITRATE [Suspect]
     Active Substance: POTASSIUM CITRATE
     Indication: Cystinuria
  2. THIOLA EC [Concomitant]
     Active Substance: TIOPRONIN
     Dates: start: 20190906
  3. PLAVIX [Concomitant]
     Active Substance: CLOPIDOGREL BISULFATE
  4. VITAMIN B12 [Concomitant]
     Active Substance: CYANOCOBALAMIN
  5. TAMSULOSIN [Concomitant]
     Active Substance: TAMSULOSIN
  6. NITROGLYCERIN [Concomitant]
     Active Substance: NITROGLYCERIN
  7. LEVOTHYROXINE [Concomitant]
     Active Substance: LEVOTHYROXINE
  8. FUROSEMIDE [Concomitant]
     Active Substance: FUROSEMIDE
  9. FINASTERIDE [Concomitant]
     Active Substance: FINASTERIDE
  10. ATORVASTATIN [Concomitant]
     Active Substance: ATORVASTATIN
  11. ALFUZOSIN [Concomitant]
     Active Substance: ALFUZOSIN
  12. THIOLA [Concomitant]
     Active Substance: TIOPRONIN
     Dates: start: 20140911, end: 20190808

REACTIONS (1)
  - Ecchymosis [Unknown]
